FAERS Safety Report 25368828 (Version 1)
Quarter: 2025Q2

REPORT INFORMATION
  Report Type: Spontaneous
  Country: PL (occurrence: PL)
  Receive Date: 20250528
  Receipt Date: 20250528
  Transmission Date: 20250717
  Serious: Yes (Hospitalization)
  Sender: NOVARTIS
  Company Number: PL-STADA-01399151

PATIENT
  Age: 55 Year
  Sex: Female

DRUGS (3)
  1. NILOTINIB [Suspect]
     Active Substance: NILOTINIB
     Indication: Chronic myeloid leukaemia
     Dosage: 800 MG, QD
     Route: 065
     Dates: start: 201401
  2. DASATINIB [Suspect]
     Active Substance: DASATINIB
     Indication: Chronic myeloid leukaemia
     Dosage: 100 MG, QD
     Route: 065
     Dates: start: 201406, end: 201907
  3. BOSUTINIB [Suspect]
     Active Substance: BOSUTINIB
     Indication: Chronic myeloid leukaemia
     Dosage: 400 MG, QD
     Route: 065
     Dates: start: 201907

REACTIONS (2)
  - Haematotoxicity [Recovered/Resolved]
  - Pleural effusion [Recovered/Resolved]
